FAERS Safety Report 6537988-9 (Version None)
Quarter: 2010Q1

REPORT INFORMATION
  Report Type: 
  Country: None (occurrence: None)
  Receive Date: 20100112
  Receipt Date: 20100112
  Transmission Date: 20100710
  Serious: Yes (Other)
  Sender: FDA-Public Use
  Company Number: None

PATIENT
  Age: 49 Year
  Sex: Female
  Weight: 61.2356 kg

DRUGS (1)
  1. GABAPENTIN [Suspect]
     Indication: MIGRAINE
     Dosage: 600 MG 1 X @ BEDTIME PO
     Route: 048
     Dates: start: 20090618, end: 20090727

REACTIONS (5)
  - DISEASE RECURRENCE [None]
  - DISSOCIATION [None]
  - MIGRAINE [None]
  - PAIN IN JAW [None]
  - SUICIDAL IDEATION [None]
